FAERS Safety Report 5986033-2 (Version None)
Quarter: 2008Q4

REPORT INFORMATION
  Report Type: 
  Country: None (occurrence: None)
  Receive Date: 20081205
  Receipt Date: 20081205
  Transmission Date: 20090506
  Serious: Yes (Life-Threatening)
  Sender: FDA-Public Use
  Company Number: None

PATIENT
  Age: 43 Year
  Sex: Female

DRUGS (17)
  1. SEROQUEL [Suspect]
     Indication: PSYCHOTIC DISORDER
     Dosage: 50 MG AM AND NOON, 600MG HS PO
     Route: 048
     Dates: start: 20081010, end: 20081017
  2. CYCLOBENZAPRINE HCL [Concomitant]
  3. SIMVASTATIN [Concomitant]
  4. METFORMIN HCL [Concomitant]
  5. LEVOTHYROXINE SODIUM [Concomitant]
  6. ALBUTEROL [Concomitant]
  7. CLONAZEPAM [Concomitant]
  8. LITHIUM CARBONATE [Concomitant]
  9. CITALOPRAM HYDROBROMIDE [Concomitant]
  10. PIOGLITAZONE [Concomitant]
  11. GABAPENTIN [Concomitant]
  12. PHENYTOIN [Concomitant]
  13. OMEPRAZOLE [Concomitant]
  14. LISINOPRIL [Concomitant]
  15. COMBIVENT [Concomitant]
  16. HYDROCODONE BITARTRATE + ACETAMINOPHEN [Concomitant]
  17. CLOTRIMAZOLE [Concomitant]

REACTIONS (2)
  - ELECTROCARDIOGRAM QT PROLONGED [None]
  - TREATMENT NONCOMPLIANCE [None]
